FAERS Safety Report 13264670 (Version 1)
Quarter: 2017Q1

REPORT INFORMATION
  Report Type: Spontaneous
  Country: US (occurrence: US)
  Receive Date: 20170223
  Receipt Date: 20170223
  Transmission Date: 20170428
  Serious: Yes (Other)
  Sender: FDA-Public Use
  Company Number: None

PATIENT
  Age: 57 Year
  Sex: Female
  Weight: 73.6 kg

DRUGS (10)
  1. LANTUS [Concomitant]
     Active Substance: INSULIN GLARGINE
  2. NAPROXEN. [Concomitant]
     Active Substance: NAPROXEN
  3. METHYLPHENIDATE. [Concomitant]
     Active Substance: METHYLPHENIDATE
  4. FLUOEXETINE [Concomitant]
  5. CEFTRIAXONE. [Concomitant]
     Active Substance: CEFTRIAXONE
  6. OXYCODONE [Concomitant]
     Active Substance: OXYCODONE
  7. DILTIAZEM CD [Concomitant]
     Active Substance: DILTIAZEM
  8. ABILIFY [Concomitant]
     Active Substance: ARIPIPRAZOLE
  9. VANCOMYCIN [Suspect]
     Active Substance: VANCOMYCIN
     Indication: OSTEOMYELITIS
     Route: 041
     Dates: start: 20170113, end: 20170218
  10. NOVOLOG MIX 70/30 [Concomitant]
     Active Substance: INSULIN ASPART

REACTIONS (2)
  - Tinnitus [None]
  - Ear disorder [None]

NARRATIVE: CASE EVENT DATE: 20170219
